FAERS Safety Report 7558278-1 (Version None)
Quarter: 2011Q2

REPORT INFORMATION
  Report Type: 
  Country: None (occurrence: None)
  Receive Date: 20110620
  Receipt Date: 20110613
  Transmission Date: 20111010
  Serious: Yes (Hospitalization)
  Sender: FDA-Public Use
  Company Number: US-US-EMD SERONO, INC.-7065380

PATIENT
  Sex: Female

DRUGS (3)
  1. REBIF [Suspect]
     Indication: MULTIPLE SCLEROSIS
     Route: 058
     Dates: start: 20110120
  2. UNSPECIFIED DIURETIC [Concomitant]
     Indication: HYPERTENSION
     Dates: end: 20110301
  3. REBIF [Suspect]
     Route: 058

REACTIONS (2)
  - INFLUENZA LIKE ILLNESS [None]
  - BLOOD POTASSIUM DECREASED [None]
